FAERS Safety Report 24920251 (Version 1)
Quarter: 2025Q1

REPORT INFORMATION
  Report Type: Report from Study
  Country: US (occurrence: US)
  Receive Date: 20250204
  Receipt Date: 20250204
  Transmission Date: 20250409
  Serious: No
  Sender: EXELIXIS
  Company Number: US-EXELIXIS-CABO-24073405

PATIENT
  Sex: Male
  Weight: 74.83 kg

DRUGS (24)
  1. CABOMETYX [Suspect]
     Active Substance: CABOZANTINIB S-MALATE
     Indication: Hepatocellular carcinoma
     Route: 048
  2. CABOMETYX [Suspect]
     Active Substance: CABOZANTINIB S-MALATE
     Indication: Metastases to pelvis
     Dosage: 40 MG, QD
     Route: 048
     Dates: start: 20231212
  3. CABOMETYX [Suspect]
     Active Substance: CABOZANTINIB S-MALATE
     Indication: Metastases to bone
  4. CABOMETYX [Suspect]
     Active Substance: CABOZANTINIB S-MALATE
     Indication: Metastases to adrenals
  5. CABOMETYX [Suspect]
     Active Substance: CABOZANTINIB S-MALATE
     Indication: Bile duct cancer
  6. CABOMETYX [Suspect]
     Active Substance: CABOZANTINIB S-MALATE
     Indication: Metastases to spinal cord
  7. CABOMETYX [Suspect]
     Active Substance: CABOZANTINIB S-MALATE
     Indication: Oropharyngeal cancer
  8. CABOMETYX [Suspect]
     Active Substance: CABOZANTINIB S-MALATE
     Indication: Metastases to soft tissue
  9. CABOMETYX [Suspect]
     Active Substance: CABOZANTINIB S-MALATE
     Indication: Metastases to skin
  10. AMLODIPINE [Concomitant]
     Active Substance: AMLODIPINE BESYLATE
  11. ASPIRIN [Concomitant]
     Active Substance: ASPIRIN
  12. ATORVASTATIN [Concomitant]
     Active Substance: ATORVASTATIN
  13. ENVARSUS XR [Concomitant]
     Active Substance: TACROLIMUS
  14. FLUTICASONE [Concomitant]
     Active Substance: FLUTICASONE
  15. HUMALOG [Concomitant]
     Active Substance: INSULIN LISPRO
  16. IRON [Concomitant]
     Active Substance: IRON
  17. JANUVIA [Concomitant]
     Active Substance: SITAGLIPTIN PHOSPHATE
  18. LANTUS [Concomitant]
     Active Substance: INSULIN GLARGINE
  19. MAGNESIUM OXIDE [Concomitant]
     Active Substance: MAGNESIUM OXIDE
  20. METAMUCIL [Concomitant]
     Active Substance: PLANTAGO SEED
  21. METFORMIN [Concomitant]
     Active Substance: METFORMIN HYDROCHLORIDE
  22. METOPROLOL [Concomitant]
     Active Substance: METOPROLOL
  23. OMEPRAZOLE [Concomitant]
     Active Substance: OMEPRAZOLE
  24. TYLENOL [Concomitant]
     Active Substance: ACETAMINOPHEN

REACTIONS (5)
  - Abdominal discomfort [Recovering/Resolving]
  - Dyspepsia [Recovering/Resolving]
  - Diarrhoea [Recovering/Resolving]
  - Illness [Recovering/Resolving]
  - Cough [Not Recovered/Not Resolved]
